FAERS Safety Report 8513383-8 (Version None)
Quarter: 2012Q3

REPORT INFORMATION
  Report Type: 
  Country: None (occurrence: None)
  Receive Date: 20120717
  Receipt Date: 20120709
  Transmission Date: 20120928
  Serious: Yes (Disabling)
  Sender: FDA-Public Use
  Company Number: IL-AMGEN-ISRSP2012042883

PATIENT
  Age: 62 Year
  Sex: Female
  Weight: 50 kg

DRUGS (5)
  1. OMEPRAZOLE (PRISOLEC) [Concomitant]
     Indication: GASTROOESOPHAGEAL REFLUX DISEASE
  2. PERCOCET [Concomitant]
     Indication: BACK PAIN
  3. PROLIA [Suspect]
     Indication: OSTEOPOROSIS
     Dosage: 60 MG, UNK
     Route: 058
     Dates: start: 20120417, end: 20120417
  4. ESCITALOPRAM [Concomitant]
     Indication: ANXIETY
  5. BUTRANS [Concomitant]
     Indication: BACK PAIN

REACTIONS (2)
  - CORNEAL OEDEMA [None]
  - CORNEAL DYSTROPHY [None]
